FAERS Safety Report 4641050-X (Version None)
Quarter: 2005Q2

REPORT INFORMATION
  Report Type: 
  Country: None (occurrence: None)
  Receive Date: 20050421
  Receipt Date: 20050411
  Transmission Date: 20051028
  Serious: Yes (Other)
  Sender: FDA-Public Use
  Company Number: GB-JNJFOC-20050402439

PATIENT
  Sex: Female
  Weight: 60 kg

DRUGS (8)
  1. REMICADE [Suspect]
     Indication: SERONEGATIVE ARTHRITIS
     Route: 042
  2. METHOTREXATE [Concomitant]
  3. PREDNISOLONE [Concomitant]
  4. CO-DYDRAMOL [Concomitant]
  5. CO-DYDRAMOL [Concomitant]
  6. ALENDRONATE SODIUM [Concomitant]
  7. CONTRACEPTIVE PILL [Concomitant]
  8. AURANOFIN [Concomitant]

REACTIONS (1)
  - CERVIX CARCINOMA STAGE 0 [None]
